FAERS Safety Report 14519657 (Version 1)
Quarter: 2018Q1

REPORT INFORMATION
  Report Type: Spontaneous
  Country: US (occurrence: US)
  Receive Date: 20180210
  Receipt Date: 20180210
  Transmission Date: 20180509
  Serious: Yes (Other)
  Sender: FDA-Public Use
  Company Number: None

PATIENT
  Age: 65 Year
  Sex: Female
  Weight: 76.5 kg

DRUGS (3)
  1. METHYLPRENDISOLONE 4MG [Suspect]
     Active Substance: METHYLPREDNISOLONE
     Indication: URTICARIA
     Dates: start: 20180130, end: 20180130
  2. VITAMIN D [Concomitant]
     Active Substance: CHOLECALCIFEROL
  3. VITAMIN B12 [Concomitant]
     Active Substance: CYANOCOBALAMIN

REACTIONS (8)
  - Feeling abnormal [None]
  - Abdominal discomfort [None]
  - Headache [None]
  - Pain in extremity [None]
  - Pain in jaw [None]
  - Therapy cessation [None]
  - Ear pain [None]
  - Back pain [None]

NARRATIVE: CASE EVENT DATE: 20180130
